FAERS Safety Report 11330562 (Version 4)
Quarter: 2015Q4

REPORT INFORMATION
  Report Type: Report from Study
  Country: US (occurrence: US)
  Receive Date: 20150803
  Receipt Date: 20151204
  Transmission Date: 20160304
  Serious: Yes (Hospitalization, Other)
  Sender: FDA-Public Use
  Company Number: US-AMGEN-USASP2015075747

PATIENT
  Age: 64 Year
  Sex: Female

DRUGS (2)
  1. NPLATE [Suspect]
     Active Substance: ROMIPLOSTIM
     Indication: THROMBOCYTOPENIA
     Dosage: UNK
     Route: 065
     Dates: start: 20150430
  2. PREDNISONE. [Concomitant]
     Active Substance: PREDNISONE
     Dosage: UNK
     Dates: start: 201508

REACTIONS (27)
  - Dyspnoea [Unknown]
  - VIIth nerve paralysis [Unknown]
  - Blood glucose decreased [Unknown]
  - Stress [Unknown]
  - Speech disorder [Unknown]
  - Alopecia [Not Recovered/Not Resolved]
  - Sinusitis [Unknown]
  - Adverse drug reaction [Unknown]
  - Hair texture abnormal [Not Recovered/Not Resolved]
  - Lacrimation increased [Unknown]
  - Pain [Unknown]
  - Eye swelling [Unknown]
  - Bone disorder [Unknown]
  - Hypersensitivity [Unknown]
  - Accessory spleen [Unknown]
  - Fibromyalgia [Unknown]
  - Wheezing [Unknown]
  - Asthma [Unknown]
  - Blood glucose increased [Unknown]
  - Blood cortisol decreased [Unknown]
  - Contusion [Unknown]
  - Dental caries [Unknown]
  - Visual impairment [Unknown]
  - Fatigue [Unknown]
  - Platelet count abnormal [Unknown]
  - Arthropathy [Unknown]
  - Headache [Unknown]

NARRATIVE: CASE EVENT DATE: 201408
